FAERS Safety Report 25187743 (Version 1)
Quarter: 2025Q2

REPORT INFORMATION
  Report Type: Spontaneous
  Country: GB (occurrence: GB)
  Receive Date: 20250411
  Receipt Date: 20250411
  Transmission Date: 20250717
  Serious: Yes (Death, Hospitalization, Other)
  Sender: SANDOZ
  Company Number: GB-BAXTER-2023BAX024380

PATIENT
  Age: 71 Year
  Sex: Male

DRUGS (46)
  1. CYCLOPHOSPHAMIDE [Suspect]
     Active Substance: CYCLOPHOSPHAMIDE
     Indication: Product used for unknown indication
     Route: 042
     Dates: start: 20230128, end: 20230130
  2. FLUDARABINE [Suspect]
     Active Substance: FLUDARABINE PHOSPHATE
     Indication: Acute myeloid leukaemia recurrent
     Route: 042
     Dates: start: 20230127, end: 20230130
  3. MESNA [Suspect]
     Active Substance: MESNA
     Indication: Supportive care
     Dosage: 800 MG , QD(400 MG, 2 IN 1 D)
     Route: 048
     Dates: start: 20230127, end: 20230127
  4. ACYCLOVIR [Concomitant]
     Active Substance: ACYCLOVIR
     Indication: Antiviral prophylaxis
     Dosage: 800 MG (400 MG, 2 IN 1 D)
     Route: 048
     Dates: start: 20230126
  5. CALCIUM CARBONATE\CHOLECALCIFEROL [Concomitant]
     Active Substance: CALCIUM CARBONATE\CHOLECALCIFEROL
     Indication: Supplementation therapy
     Dosage: 1 DOSAGE FORM, QD (1 UNIT (1 IN 1 D)
     Route: 048
     Dates: start: 20230126, end: 20230201
  6. CALCIUM CARBONATE\CHOLECALCIFEROL [Concomitant]
     Active Substance: CALCIUM CARBONATE\CHOLECALCIFEROL
     Dosage: 1 DOSAGE FORM, BID (1 UNITS, BID )
     Route: 048
     Dates: start: 20230201
  7. ALLOPURINOL [Concomitant]
     Active Substance: ALLOPURINOL
     Indication: Supportive care
     Dosage: 300 MG (1 IN 1 D)
     Route: 048
     Dates: start: 20230128, end: 20230208
  8. CALCIUM GLUCONATE [Concomitant]
     Active Substance: CALCIUM GLUCONATE
     Indication: Mineral supplementation
     Dosage: 10 ML (1 IN 1 D)
     Route: 042
     Dates: start: 20230128, end: 20230131
  9. CALCIUM GLUCONATE [Concomitant]
     Active Substance: CALCIUM GLUCONATE
     Indication: Supplementation therapy
     Route: 065
     Dates: start: 20230629, end: 20230705
  10. CHLORHEXIDINE [Concomitant]
     Active Substance: CHLORHEXIDINE
     Indication: Supportive care
     Dosage: 40 ML (10 ML, 4 IN 1 D)
     Route: 048
     Dates: start: 20230127, end: 20230208
  11. CIPROFLOXACIN [Concomitant]
     Active Substance: CIPROFLOXACIN
     Indication: Prophylaxis
     Dosage: 250 MG, BID
     Route: 048
     Dates: start: 20230207, end: 20230216
  12. COTRIMOXAZOLE [Concomitant]
     Active Substance: SULFAMETHOXAZOLE\TRIMETHOPRIM
     Indication: Infection prophylaxis
     Route: 048
     Dates: start: 20230127, end: 20230208
  13. CYCLIZINE [Concomitant]
     Active Substance: CYCLIZINE
     Indication: Supportive care
     Dosage: 150 MG, QD (50 MG, 3 IN 1 DAY)
     Route: 042
  14. CYCLIZINE [Concomitant]
     Active Substance: CYCLIZINE
     Route: 065
  15. DOMPERIDONE [Concomitant]
     Active Substance: DOMPERIDONE
     Indication: Product used for unknown indication
     Dosage: 30 MG (10 MG, 3 IN 1 D)
     Route: 048
     Dates: start: 20230127, end: 20230207
  16. DOMPERIDONE [Concomitant]
     Active Substance: DOMPERIDONE
     Indication: Supportive care
     Route: 048
     Dates: start: 20230208
  17. FOLIC ACID [Concomitant]
     Active Substance: FOLIC ACID
     Indication: Supplementation therapy
     Dosage: 5 MG (1 IN 1 D)
     Route: 048
     Dates: start: 20230126
  18. FUROSEMIDE [Concomitant]
     Active Substance: FUROSEMIDE
     Indication: Supportive care
     Dosage: 40 MG, QD
     Route: 042
     Dates: start: 20230201
  19. FUROSEMIDE [Concomitant]
     Active Substance: FUROSEMIDE
     Dosage: 40 MG, QD
     Route: 048
     Dates: start: 20230202, end: 20230203
  20. LANTUS [Concomitant]
     Active Substance: INSULIN GLARGINE
     Indication: Type 2 diabetes mellitus
     Dosage: 10 UNITS (1 IN 1 D)
     Route: 058
     Dates: start: 20230128, end: 20230130
  21. LANTUS [Concomitant]
     Active Substance: INSULIN GLARGINE
     Indication: Product used for unknown indication
     Dosage: 8 UNITS (1 IN 1 D)
     Route: 058
     Dates: start: 20230127, end: 20230128
  22. LANTUS [Concomitant]
     Active Substance: INSULIN GLARGINE
     Route: 058
     Dates: start: 20230131
  23. LEVETIRACETAM [Concomitant]
     Active Substance: LEVETIRACETAM
     Indication: Supportive care
     Dosage: 1500 MG (750 MG, 2 IN 1 D)
     Route: 048
     Dates: start: 20230127, end: 20230303
  24. LEVOMEPROMAZINE [Concomitant]
     Active Substance: LEVOMEPROMAZINE
     Indication: Supportive care
     Route: 048
     Dates: start: 20230130, end: 20230208
  25. MAGNESIUM [Concomitant]
     Active Substance: MAGNESIUM
     Indication: Supplementation therapy
     Route: 041
     Dates: start: 20230131
  26. METFORMIN [Concomitant]
     Active Substance: METFORMIN HYDROCHLORIDE
     Indication: Product used for unknown indication
     Dosage: 500 MG, 2 IN 1 D
     Route: 048
     Dates: start: 20220320
  27. METFORMIN [Concomitant]
     Active Substance: METFORMIN HYDROCHLORIDE
     Indication: Type 2 diabetes mellitus
     Dosage: 2 G, QD (1 GM, 2 IN 1 D)
     Route: 048
     Dates: start: 20220327
  28. METFORMIN [Concomitant]
     Active Substance: METFORMIN HYDROCHLORIDE
     Route: 048
     Dates: start: 20220127
  29. NOVORAPID [Concomitant]
     Active Substance: INSULIN ASPART
     Indication: Type 2 diabetes mellitus
     Route: 058
     Dates: start: 20230126, end: 20230228
  30. NYSTATIN [Concomitant]
     Active Substance: NYSTATIN
     Indication: Antifungal prophylaxis
     Dosage: 4 ML (1 ML, 4 IN 1 D)
     Route: 048
     Dates: start: 20200514
  31. OMEPRAZOLE [Concomitant]
     Active Substance: OMEPRAZOLE
     Indication: Prophylaxis
     Dosage: 20 MG (1 IN 1 D)
     Route: 048
     Dates: start: 20230126
  32. ONDANSETRON [Concomitant]
     Active Substance: ONDANSETRON
     Indication: Supportive care
     Dosage: 16 MG (8 MG, 2 IN 1 D)
     Route: 048
     Dates: start: 20230127, end: 20230203
  33. ACETAMINOPHEN [Concomitant]
     Active Substance: ACETAMINOPHEN
     Indication: Product used for unknown indication
     Route: 048
     Dates: start: 20230128, end: 20230208
  34. ACETAMINOPHEN [Concomitant]
     Active Substance: ACETAMINOPHEN
     Indication: Prophylaxis
     Route: 042
  35. PENICILLIN V [Concomitant]
     Active Substance: PENICILLIN V
     Indication: Prophylaxis
     Dosage: 1000 MG (500 MG, 2 IN 1 D)
     Route: 048
     Dates: start: 20230126, end: 20230129
  36. HUMAN RED BLOOD CELL [Concomitant]
     Active Substance: HUMAN RED BLOOD CELL
     Indication: Product used for unknown indication
     Dosage: 1 UNIT THREE TIMES
     Route: 042
     Dates: start: 20230127
  37. HUMAN RED BLOOD CELL [Concomitant]
     Active Substance: HUMAN RED BLOOD CELL
     Indication: Prophylaxis
     Route: 042
     Dates: start: 20230129
  38. HUMAN RED BLOOD CELL [Concomitant]
     Active Substance: HUMAN RED BLOOD CELL
     Route: 042
     Dates: start: 20230207
  39. HUMAN RED BLOOD CELL [Concomitant]
     Active Substance: HUMAN RED BLOOD CELL
     Route: 042
     Dates: start: 20230202
  40. HUMAN RED BLOOD CELL [Concomitant]
     Active Substance: HUMAN RED BLOOD CELL
     Route: 042
     Dates: start: 20230608, end: 20230608
  41. HUMAN RED BLOOD CELL [Concomitant]
     Active Substance: HUMAN RED BLOOD CELL
     Route: 042
     Dates: start: 20230615, end: 20230615
  42. HUMAN RED BLOOD CELL [Concomitant]
     Active Substance: HUMAN RED BLOOD CELL
     Route: 042
     Dates: start: 20230623, end: 20230623
  43. HUMAN RED BLOOD CELL [Concomitant]
     Active Substance: HUMAN RED BLOOD CELL
     Route: 042
  44. HUMAN RED BLOOD CELL [Concomitant]
     Active Substance: HUMAN RED BLOOD CELL
     Route: 042
     Dates: start: 20230630, end: 20230701
  45. ROSUVASTATIN [Concomitant]
     Active Substance: ROSUVASTATIN
     Indication: Hypercholesterolaemia
     Dosage: 20 MG (1 IN 1 D)
     Route: 048
     Dates: start: 20230127, end: 20230131
  46. VORICONAZOLE [Concomitant]
     Active Substance: VORICONAZOLE
     Indication: Antifungal prophylaxis
     Dosage: 200 MG, BID
     Route: 065
     Dates: start: 20230202, end: 20230208

REACTIONS (3)
  - Post transplant lymphoproliferative disorder [Fatal]
  - Febrile neutropenia [Recovered/Resolved]
  - Diarrhoea [Unknown]

NARRATIVE: CASE EVENT DATE: 20230129
